FAERS Safety Report 10051183 (Version 2)
Quarter: 2015Q1

REPORT INFORMATION
  Report Type: Spontaneous
  Country: FR (occurrence: FR)
  Receive Date: 20140401
  Receipt Date: 20150311
  Transmission Date: 20150720
  Serious: Yes (Death)
  Sender: FDA-Public Use
  Company Number: FR-PFIZER INC-2014088081

PATIENT
  Age: 56 Year
  Sex: Female

DRUGS (7)
  1. CEFTRIAXONE KABI [Concomitant]
     Indication: HYPOXIA
  2. TAVANIC [Concomitant]
     Active Substance: LEVOFLOXACIN
     Indication: HYPOXIA
  3. TAVANIC [Concomitant]
     Active Substance: LEVOFLOXACIN
     Indication: INTERSTITIAL LUNG DISEASE
  4. VFEND [Suspect]
     Active Substance: VORICONAZOLE
     Indication: BRONCHOPULMONARY ASPERGILLOSIS
     Dosage: UNK
     Route: 042
     Dates: start: 20140308, end: 20140314
  5. TAMIFLU [Concomitant]
     Active Substance: OSELTAMIVIR PHOSPHATE
     Indication: HYPOXIA
  6. CEFTRIAXONE KABI [Concomitant]
     Indication: INTERSTITIAL LUNG DISEASE
  7. TAMIFLU [Concomitant]
     Active Substance: OSELTAMIVIR PHOSPHATE
     Indication: INTERSTITIAL LUNG DISEASE

REACTIONS (2)
  - Conduction disorder [Fatal]
  - Cardio-respiratory arrest [Fatal]

NARRATIVE: CASE EVENT DATE: 20140313
